FAERS Safety Report 5269549-6 (Version None)
Quarter: 2007Q1

REPORT INFORMATION
  Report Type: 
  Country: None (occurrence: None)
  Receive Date: 20070320
  Receipt Date: 20070315
  Transmission Date: 20070707
  Serious: Yes (Hospitalization)
  Sender: FDA-Public Use
  Company Number: DE-AVENTIS-200710698DE

PATIENT
  Age: 56 Year
  Sex: Female
  Weight: 92 kg

DRUGS (6)
  1. ARAVA [Suspect]
     Indication: RHEUMATOID ARTHRITIS
     Route: 048
     Dates: start: 20020101, end: 20060320
  2. ARCOXIA [Suspect]
     Indication: RHEUMATOID ARTHRITIS
     Route: 048
     Dates: start: 20060306, end: 20060308
  3. ARTHROTEC [Concomitant]
     Route: 048
     Dates: start: 20020101, end: 20060308
  4. METHOTREXAT                        /00113801/ [Concomitant]
     Indication: RHEUMATOID ARTHRITIS
     Route: 048
     Dates: start: 19970101, end: 20020101
  5. CORTISONE ACETATE [Concomitant]
     Indication: RHEUMATOID ARTHRITIS
     Dosage: DOSE: 1X1
     Route: 048
     Dates: start: 19970101, end: 20020101
  6. ANTIBIOTICS [Concomitant]
     Indication: CYSTITIS
     Dosage: DOSE: 1X1
     Route: 048
     Dates: start: 20040101, end: 20040101

REACTIONS (1)
  - HEPATITIS ACUTE [None]
